FAERS Safety Report 16731812 (Version 2)
Quarter: 2019Q3

REPORT INFORMATION
  Report Type: Spontaneous
  Country: GB (occurrence: GB)
  Receive Date: 20190822
  Receipt Date: 20190923
  Transmission Date: 20191005
  Serious: Yes (Other)
  Sender: FDA-Public Use
  Company Number: GB-MYLANLABS-2019M1077642

PATIENT
  Sex: Female

DRUGS (1)
  1. MODAFINIL ?MYLAN?, TABLETTER [Suspect]
     Active Substance: MODAFINIL
     Indication: NARCOLEPSY
     Dosage: UNK
     Route: 065

REACTIONS (1)
  - Drug ineffective [Recovered/Resolved]
